FAERS Safety Report 17460692 (Version 1)
Quarter: 2020Q1

REPORT INFORMATION
  Report Type: Spontaneous
  Country: US (occurrence: US)
  Receive Date: 20200225
  Receipt Date: 20200225
  Transmission Date: 20200409
  Serious: Yes (Hospitalization, Other)
  Sender: FDA-Public Use
  Company Number: None

PATIENT
  Age: 59 Year
  Sex: Female
  Weight: 62.1 kg

DRUGS (4)
  1. LEVADOPA/CARDOPA [Concomitant]
  2. SYNTHROID [Concomitant]
     Active Substance: LEVOTHYROXINE SODIUM
  3. EMGALITY [Suspect]
     Active Substance: GALCANEZUMAB-GNLM
     Indication: MIGRAINE
     Dosage: ?          QUANTITY:2 INJECTION(S);OTHER FREQUENCY:ONCE A MONTH;?
     Route: 058
     Dates: start: 20191215, end: 20200115
  4. RESEGILINE [Concomitant]

REACTIONS (6)
  - Chest pain [None]
  - Poor peripheral circulation [None]
  - Urticaria [None]
  - Throat irritation [None]
  - Raynaud^s phenomenon [None]
  - Dyspnoea [None]

NARRATIVE: CASE EVENT DATE: 20200105
